FAERS Safety Report 19133801 (Version 1)
Quarter: 2021Q2

REPORT INFORMATION
  Report Type: Spontaneous
  Country: AU (occurrence: AU)
  Receive Date: 20210414
  Receipt Date: 20210414
  Transmission Date: 20210717
  Serious: Yes (Other)
  Sender: FDA-Public Use
  Company Number: NVSC2021AU082006

PATIENT
  Age: 77 Year
  Sex: Female

DRUGS (2)
  1. PIPERACILLIN,TAZOBACTAM [Suspect]
     Active Substance: PIPERACILLIN SODIUM\TAZOBACTAM SODIUM
     Indication: INFECTIVE EXACERBATION OF BRONCHIECTASIS
     Dosage: 4.5 G, QID (MONOTHERAPY)
     Route: 065
     Dates: start: 2014
  2. PIPERACILLIN,TAZOBACTAM [Suspect]
     Active Substance: PIPERACILLIN SODIUM\TAZOBACTAM SODIUM
     Indication: PSEUDOMONAS INFECTION

REACTIONS (2)
  - Haemolytic anaemia [Recovered/Resolved]
  - Product use in unapproved indication [Unknown]
